FAERS Safety Report 6543425-0 (Version None)
Quarter: 2010Q1

REPORT INFORMATION
  Report Type: 
  Country: None (occurrence: None)
  Receive Date: 20100120
  Receipt Date: 20100115
  Transmission Date: 20100710
  Serious: Yes (Hospitalization)
  Sender: FDA-Public Use
  Company Number: ES-SANOFI-AVENTIS-2010SA002766

PATIENT
  Age: 60 Year
  Sex: Male

DRUGS (1)
  1. CLEXANE (AMPOULES) [Suspect]
     Indication: SURGERY
     Route: 058
     Dates: start: 20091119, end: 20091119

REACTIONS (4)
  - ASPHYXIA [None]
  - DYSPNOEA [None]
  - ERYTHEMA [None]
  - LARYNGEAL OEDEMA [None]
